FAERS Safety Report 5937352-7 (Version None)
Quarter: 2008Q4

REPORT INFORMATION
  Report Type: 
  Country: None (occurrence: None)
  Receive Date: 20081021
  Receipt Date: 20071112
  Transmission Date: 20090506
  Serious: Yes (Hospitalization, Other)
  Sender: FDA-Public Use
  Company Number: US-WYE-H01212407

PATIENT
  Age: 72 Year
  Sex: Female
  Weight: 64.92 kg

DRUGS (1)
  1. PREMARIN [Suspect]
     Indication: HORMONE REPLACEMENT THERAPY
     Dosage: 0.625 MG 1X PER 1 DAY, ORAL
     Route: 048
     Dates: start: 19680101, end: 19780101

REACTIONS (3)
  - BREAST CANCER [None]
  - BREAST MASS [None]
  - UPPER EXTREMITY MASS [None]
